FAERS Safety Report 16245939 (Version 2)
Quarter: 2019Q2

REPORT INFORMATION
  Report Type: Spontaneous
  Country: US (occurrence: US)
  Receive Date: 20190426
  Receipt Date: 20190517
  Transmission Date: 20190711
  Serious: Yes (Other)
  Sender: FDA-Public Use
  Company Number: US-009507513-1904USA009981

PATIENT
  Age: 23 Year
  Sex: Female
  Weight: 69.49 kg

DRUGS (4)
  1. NEXPLANON [Suspect]
     Active Substance: ETONOGESTREL
     Indication: CONTRACEPTION
     Dosage: 1 IMPLANT
     Route: 059
  2. BUPROPION. [Concomitant]
     Active Substance: BUPROPION
     Indication: BORDERLINE PERSONALITY DISORDER
     Dosage: DOSE: 100MILLIGRAM (TOTAL DAILY DOSE: 300MILLIGRAM)
     Route: 048
  3. NEXPLANON [Suspect]
     Active Substance: ETONOGESTREL
     Dosage: 1 IMPLANT, ONCE EVERY 3 YEARS WHICH WAS PLACED ON SUBDERMALLY LEFT UPER ARM
     Route: 059
     Dates: start: 20160425
  4. LITHIUM. [Concomitant]
     Active Substance: LITHIUM
     Indication: BORDERLINE PERSONALITY DISORDER
     Dosage: DOSE: 360 MILLIGRAM (TOTAL DAILY DOSE:1200MILLIGRAM DAILY)
     Route: 048

REACTIONS (4)
  - Pain [Not Recovered/Not Resolved]
  - Weight increased [Not Recovered/Not Resolved]
  - Device dislocation [Not Recovered/Not Resolved]
  - Incorrect product administration duration [Not Recovered/Not Resolved]

NARRATIVE: CASE EVENT DATE: 201604
